FAERS Safety Report 4978863-0 (Version None)
Quarter: 2006Q2

REPORT INFORMATION
  Report Type: 
  Country: None (occurrence: None)
  Receive Date: 20060417
  Receipt Date: 20060405
  Transmission Date: 20061013
  Serious: Yes (Hospitalization, Other)
  Sender: FDA-Public Use
  Company Number: 223385

PATIENT
  Age: 65 Year
  Sex: Male

DRUGS (5)
  1. RITUXAN [Suspect]
     Indication: DIFFUSE LARGE B-CELL LYMPHOMA
     Dosage: 375 MG/M2, Q3W, INTRAVENOUS
     Route: 042
     Dates: start: 20060201
  2. CYCLOPHOSPHAMIDE [Concomitant]
  3. DOXORUBICIN HCL [Concomitant]
  4. VINCRISTINE [Concomitant]
  5. PREDNISONE TAB [Concomitant]

REACTIONS (7)
  - ABASIA [None]
  - BLINDNESS UNILATERAL [None]
  - DYSPHAGIA [None]
  - FACIAL PALSY [None]
  - HYPOAESTHESIA [None]
  - MONONEUROPATHY MULTIPLEX [None]
  - NERVE COMPRESSION [None]
